FAERS Safety Report 15732879 (Version 1)
Quarter: 2018Q4

REPORT INFORMATION
  Report Type: Spontaneous
  Country: US (occurrence: US)
  Receive Date: 20181217
  Receipt Date: 20181217
  Transmission Date: 20190205
  Serious: No
  Sender: FDA-Public Use
  Company Number: PHEH2018US052500

PATIENT
  Sex: Female

DRUGS (1)
  1. PROMACTA [Suspect]
     Active Substance: ELTROMBOPAG OLAMINE
     Indication: THROMBOCYTOPENIA
     Dosage: 50 MG, QD
     Route: 048
     Dates: start: 201809

REACTIONS (6)
  - Joint swelling [Unknown]
  - Contusion [Unknown]
  - Fatigue [Unknown]
  - Oropharyngeal pain [Unknown]
  - Peripheral swelling [Unknown]
  - Alopecia [Unknown]
